FAERS Safety Report 14694586 (Version 1)
Quarter: 2018Q1

REPORT INFORMATION
  Report Type: Spontaneous
  Country: US (occurrence: US)
  Receive Date: 20180329
  Receipt Date: 20180329
  Transmission Date: 20180509
  Serious: Yes (Other)
  Sender: FDA-Public Use
  Company Number: US-MYLANLABS-2018M1019009

PATIENT
  Age: 56 Year
  Sex: Male

DRUGS (9)
  1. INSULIN GLULISINE [Concomitant]
     Active Substance: INSULIN GLULISINE
     Indication: PRODUCT USED FOR UNKNOWN INDICATION
     Dosage: 20 UNITS BEFORE EACH MEAL
     Route: 058
  2. BISOPROLOL W/HYDROCHLOROTHIAZIDE   /01166101/ [Concomitant]
     Indication: PRODUCT USED FOR UNKNOWN INDICATION
     Dosage: 5/6.25 MG TWICE DAILY
     Route: 048
  3. SILDENAFIL. [Concomitant]
     Active Substance: SILDENAFIL
     Indication: PRODUCT USED FOR UNKNOWN INDICATION
     Dosage: 50 MG AS NEEDED
     Route: 048
  4. PRAVASTATIN. [Concomitant]
     Active Substance: PRAVASTATIN
     Indication: PRODUCT USED FOR UNKNOWN INDICATION
     Dosage: 10 MG DAILY
     Route: 048
  5. QUETIAPINE. [Suspect]
     Active Substance: QUETIAPINE
     Indication: INSOMNIA
     Dosage: AT BEDTIME
     Route: 065
  6. INSULIN GLARGINE [Concomitant]
     Active Substance: INSULIN GLARGINE
     Indication: PRODUCT USED FOR UNKNOWN INDICATION
     Dosage: 28 UNITS AT BEDTIME, AT 1 MONTH FOLLOW-UP VISIT DOSE REMAINED 28 UNITS DAILY
     Route: 058
  7. INSULIN GLULISINE [Concomitant]
     Active Substance: INSULIN GLULISINE
     Dosage: 25 UNITS BEFORE EACH MEAL, AT 1 MONTH FOLLOW-UP VISIT; AT A SECOND FOLLOW-UP VISIT THE NEXT MONTH...
     Route: 058
  8. AMLODIPINE [Concomitant]
     Active Substance: AMLODIPINE BESYLATE
     Indication: PRODUCT USED FOR UNKNOWN INDICATION
     Dosage: 5 MG DAILY
     Route: 048
  9. INSULIN GLARGINE [Concomitant]
     Active Substance: INSULIN GLARGINE
     Dosage: 36 UNITS DAILY; AT A SECOND FOLLOW-UP VISIT
     Route: 058

REACTIONS (3)
  - Prescription drug used without a prescription [Recovering/Resolving]
  - Type 2 diabetes mellitus [Recovering/Resolving]
  - Intentional product misuse [Recovering/Resolving]
